FAERS Safety Report 13346839 (Version 3)
Quarter: 2017Q3

REPORT INFORMATION
  Report Type: Spontaneous
  Country: FR (occurrence: FR)
  Receive Date: 20170317
  Receipt Date: 20170720
  Transmission Date: 20171127
  Serious: Yes (Death)
  Sender: FDA-Public Use
  Company Number: FR-PFIZER INC-2017112363

PATIENT
  Age: 64 Year
  Sex: Male

DRUGS (6)
  1. DOCETAXEL. [Suspect]
     Active Substance: DOCETAXEL
     Dosage: 100 MG, CYCLIC (ONCE PER CYCLE,ON D2)
     Route: 042
     Dates: start: 20151225
  2. DOCETAXEL. [Suspect]
     Active Substance: DOCETAXEL
     Indication: OESOPHAGEAL ADENOCARCINOMA
     Dosage: 100 MG, CYCLIC (ONCE PER CYCLE,ON D2)
     Route: 042
     Dates: start: 20151204
  3. OXALIPLATINE ACCORD [Suspect]
     Active Substance: OXALIPLATIN
     Dosage: 150 MG, CYCLIC (ONCE PER CYCLE, ON D2)
     Route: 042
     Dates: start: 20151225
  4. FLUOROURACILE ACCORD [Suspect]
     Active Substance: FLUOROURACIL
     Dosage: 800 MG, CYCLIC (ONCE PER CYCLE,ON DAY D1 AND D2)
     Route: 042
     Dates: start: 20151225
  5. FLUOROURACILE ACCORD [Suspect]
     Active Substance: FLUOROURACIL
     Indication: OESOPHAGEAL ADENOCARCINOMA
     Dosage: 800 MG, CYCLIC (ONCE  PER CYCLE,ON DAY D1 AND D2)
     Route: 042
     Dates: start: 20151204
  6. OXALIPLATINE ACCORD [Suspect]
     Active Substance: OXALIPLATIN
     Indication: OESOPHAGEAL ADENOCARCINOMA
     Dosage: 150 MG, CYCLIC (ONCE PER CYCLE, ON D2)
     Route: 042
     Dates: start: 20151204

REACTIONS (5)
  - Erythema [Fatal]
  - Tachycardia [Fatal]
  - Acute respiratory failure [Fatal]
  - Pleural effusion [Fatal]
  - Hypertension [Fatal]

NARRATIVE: CASE EVENT DATE: 20151227
